FAERS Safety Report 9519098 (Version 1)
Quarter: 2013Q1

REPORT INFORMATION
  Report Type: Spontaneous
  Country: US (occurrence: None)
  Receive Date: 20130305
  Receipt Date: 20130305
  Transmission Date: 20140127
  Serious: Yes (Other)
  Sender: FDA-Public Use
  Company Number: 163-21880-12040501

PATIENT
  Age: 55 Year
  Sex: Male

DRUGS (3)
  1. REVLIMID (LENALIDOMIDE)(25 MILLIGRAM, CAPSULES) [Suspect]
     Indication: PLASMA CELL MYELOMA
     Dosage: 25MG, 21 DAY ON, 7 DAYS OFF, PO
     Route: 048
     Dates: start: 200907
  2. VELCADE (UNKNOWN) [Suspect]
     Indication: PLASMA CELL MYELOMA
     Dosage: 2.7 MG, 21 DAYS ON, 7 DAYS, IV
     Route: 042
     Dates: start: 20111018, end: 20120217
  3. DEXAMETHASONE (DEXAMETHASONE) (UNKNOWN) [Concomitant]

REACTIONS (3)
  - Cerebral artery occlusion [None]
  - Renal failure chronic [None]
  - Neuropathy peripheral [None]
